FAERS Safety Report 20184184 (Version 1)
Quarter: 2021Q4

REPORT INFORMATION
  Report Type: Spontaneous
  Country: US (occurrence: US)
  Receive Date: 20211214
  Receipt Date: 20211214
  Transmission Date: 20220303
  Serious: No
  Sender: FDA-Public Use
  Company Number: US-ABBVIE-21K-163-4037919-00

PATIENT
  Sex: Female

DRUGS (2)
  1. IMBRUVICA [Suspect]
     Active Substance: IBRUTINIB
     Indication: Waldenstrom^s macroglobulinaemia
     Route: 048
  2. IMBRUVICA [Suspect]
     Active Substance: IBRUTINIB
     Route: 048

REACTIONS (7)
  - Hypophagia [Unknown]
  - Drug intolerance [Unknown]
  - Rash [Unknown]
  - Furuncle [Unknown]
  - Fatigue [Unknown]
  - Abdominal discomfort [Unknown]
  - Weight decreased [Unknown]
